FAERS Safety Report 4860636-0 (Version None)
Quarter: 2005Q4

REPORT INFORMATION
  Report Type: 
  Country: None (occurrence: None)
  Receive Date: 20051216
  Receipt Date: 20051128
  Transmission Date: 20060501
  Serious: Yes (Other)
  Sender: FDA-Public Use
  Company Number: 200514225BCC

PATIENT
  Age: 38 Year
  Sex: Female

DRUGS (5)
  1. ALEVE COLD AND SINUS [Suspect]
     Indication: HEADACHE
     Dosage: 220 MG, ONCE, ORAL
     Route: 048
     Dates: start: 20051015
  2. ALEVE COLD AND SINUS [Suspect]
     Indication: NASAL CONGESTION
     Dosage: 220 MG, ONCE, ORAL
     Route: 048
     Dates: start: 20051015
  3. ALEVE COLD AND SINUS [Suspect]
     Indication: SINUS CONGESTION
     Dosage: 220 MG, ONCE, ORAL
     Route: 048
     Dates: start: 20051015
  4. CAFFEINE [Suspect]
  5. KLONOPIN [Concomitant]

REACTIONS (7)
  - ADVERSE DRUG REACTION [None]
  - BLOOD PRESSURE INCREASED [None]
  - DIZZINESS [None]
  - FEELING JITTERY [None]
  - HEART RATE INCREASED [None]
  - NAUSEA [None]
  - ORAL INTAKE REDUCED [None]
